FAERS Safety Report 7286278-8 (Version None)
Quarter: 2011Q1

REPORT INFORMATION
  Report Type: 
  Country: None (occurrence: None)
  Receive Date: 20110120
  Receipt Date: 20110112
  Transmission Date: 20110831
  Serious: Yes (Other)
  Sender: FDA-Public Use
  Company Number: DSU-2011-00281

PATIENT
  Age: 49 Year
  Sex: Female
  Weight: 89.8122 kg

DRUGS (5)
  1. SYNTHROID (LEVOTHYROXINE SODIUM) (LEVOTHYROXINE SODIUM) [Concomitant]
  2. AVAPRO (IRBESARTAN) (IRBESARTAN) [Concomitant]
  3. TRIBENZOR [Suspect]
     Indication: HYPERTENSION
     Dosage: 40/5/25MG (QD),PER ORAL
     Route: 048
     Dates: start: 20101229, end: 20110108
  4. BYSTOLIC [Suspect]
     Indication: HEART RATE INCREASED
     Dosage: PER ORAL
     Route: 048
     Dates: start: 20110106, end: 20110108
  5. ZIAC (HYDROCHLOROTHIAZIDE, BISOPROLOL, FUMARATE) (HYDROCHLOROTHIAZIDE, [Concomitant]

REACTIONS (6)
  - HEART RATE INCREASED [None]
  - NAUSEA [None]
  - DYSTONIA [None]
  - PAIN IN JAW [None]
  - OROPHARYNGEAL PAIN [None]
  - DYSPHEMIA [None]
